FAERS Safety Report 23947925 (Version 2)
Quarter: 2024Q3

REPORT INFORMATION
  Report Type: Report from Study
  Country: CO (occurrence: CO)
  Receive Date: 20240606
  Receipt Date: 20240830
  Transmission Date: 20241016
  Serious: Yes (Hospitalization, Other)
  Sender: ABBVIE
  Company Number: CO-ABBVIE-5789055

PATIENT
  Sex: Male
  Weight: 62 kg

DRUGS (6)
  1. SKYRIZI [Suspect]
     Active Substance: RISANKIZUMAB-RZAA
     Indication: Psoriasis
     Dosage: FORM STRENGTH: 150 MILLIGRAM
     Route: 058
     Dates: start: 20221010, end: 20240126
  2. OXYGEN [Concomitant]
     Active Substance: OXYGEN
     Indication: Adverse event
  3. ALBUTEROL [Concomitant]
     Active Substance: ALBUTEROL
     Indication: Adverse event
     Route: 055
     Dates: start: 20240523
  4. FLUTICASONE PROPIONATE\SALMETEROL XINAFOATE [Concomitant]
     Active Substance: FLUTICASONE PROPIONATE\SALMETEROL XINAFOATE
     Indication: Product used for unknown indication
     Route: 055
     Dates: start: 20240523
  5. DIHYDROCODEINE [Concomitant]
     Active Substance: DIHYDROCODEINE
     Indication: Adverse event
     Route: 048
     Dates: start: 20240523
  6. IPRATROPIUM BROMIDE [Concomitant]
     Active Substance: IPRATROPIUM BROMIDE\IPRATROPIUM BROMIDE ANHYDROUS
     Indication: Product used for unknown indication
     Route: 055
     Dates: start: 20240523

REACTIONS (7)
  - Productive cough [Recovered/Resolved]
  - Pyrexia [Recovered/Resolved]
  - Malaise [Recovered/Resolved]
  - Headache [Recovered/Resolved]
  - Pneumonia [Unknown]
  - Chronic obstructive pulmonary disease [Unknown]
  - Asphyxia [Unknown]

NARRATIVE: CASE EVENT DATE: 20240101
